FAERS Safety Report 5236287-5 (Version None)
Quarter: 2007Q1

REPORT INFORMATION
  Report Type: 
  Country: None (occurrence: None)
  Receive Date: 20070212
  Receipt Date: 20070206
  Transmission Date: 20070707
  Serious: Yes (Hospitalization)
  Sender: FDA-Public Use
  Company Number: JP-BOEHRINGER INGELHEIM PHARMACEUTICALS, INC.-2007-BP-01834NB

PATIENT
  Sex: Male
  Weight: 68.5 kg

DRUGS (8)
  1. MICARDIS [Suspect]
     Indication: HYPERTENSION
     Route: 048
     Dates: start: 20050101
  2. URINORM [Concomitant]
     Route: 048
  3. LIPOVAS [Concomitant]
     Route: 048
     Dates: start: 20061101
  4. TAGAMET [Concomitant]
     Route: 048
  5. SLO-BID [Concomitant]
     Route: 048
  6. MEPTIN [Concomitant]
     Route: 048
  7. URALYT [Concomitant]
     Route: 048
  8. APLACE [Concomitant]
     Route: 048

REACTIONS (1)
  - PNEUMONIA [None]
